FAERS Safety Report 14765566 (Version 4)
Quarter: 2018Q3

REPORT INFORMATION
  Report Type: Spontaneous
  Country: SK (occurrence: SK)
  Receive Date: 20180416
  Receipt Date: 20180828
  Transmission Date: 20181010
  Serious: Yes (Other)
  Sender: FDA-Public Use
  Company Number: SK-MYLANLABS-2018M1023128

PATIENT
  Age: 62 Year
  Sex: Male

DRUGS (4)
  1. GEMCITABINE [Suspect]
     Active Substance: GEMCITABINE\GEMCITABINE HYDROCHLORIDE
     Indication: PANCREATIC CARCINOMA METASTATIC
     Dosage: 1000 MG/M2, ON DAY 1, 8, 15 EVERY 28 DAYS
     Route: 065
  2. PACLITAXEL. [Suspect]
     Active Substance: PACLITAXEL
     Dosage: REDUCED DOSE BY 20% AFTER SIXTH CYCLE
     Route: 065
  3. PACLITAXEL. [Suspect]
     Active Substance: PACLITAXEL
     Indication: PANCREATIC CARCINOMA METASTATIC
     Dosage: 125 MG/M2, ON DAY 1, 8, 15 EVERY 28 DAYS
     Route: 065
  4. GEMCITABINE [Suspect]
     Active Substance: GEMCITABINE\GEMCITABINE HYDROCHLORIDE
     Indication: PANCREATIC CARCINOMA
     Dosage: REDUCED DOSE BY 20% AFTER THIRD CYCLE
     Route: 065

REACTIONS (10)
  - Diabetic neuropathy [Not Recovered/Not Resolved]
  - Fatigue [Recovered/Resolved]
  - Vomiting [Unknown]
  - Neutropenia [Not Recovered/Not Resolved]
  - Nausea [Unknown]
  - Thrombocytopenia [Not Recovered/Not Resolved]
  - Gastrointestinal toxicity [Unknown]
  - Pancytopenia [Unknown]
  - Anaemia [Not Recovered/Not Resolved]
  - Leukopenia [Not Recovered/Not Resolved]

NARRATIVE: CASE EVENT DATE: 201709
